FAERS Safety Report 19072821 (Version 1)
Quarter: 2021Q1

REPORT INFORMATION
  Report Type: Spontaneous
  Country: US (occurrence: US)
  Receive Date: 20210330
  Receipt Date: 20210330
  Transmission Date: 20210420
  Serious: No
  Sender: FDA-Public Use
  Company Number: None

PATIENT
  Age: 56 Year
  Sex: Male
  Weight: 76.59 kg

DRUGS (22)
  1. ACETAMINOPHEN. [Concomitant]
     Active Substance: ACETAMINOPHEN
  2. FLUTICASONE. [Concomitant]
     Active Substance: FLUTICASONE
  3. METHYLPREDNISOLONE. [Concomitant]
     Active Substance: METHYLPREDNISOLONE
  4. CLONIDINE. [Concomitant]
     Active Substance: CLONIDINE
  5. CYCLOSPORINE. [Concomitant]
     Active Substance: CYCLOSPORINE
  6. HUMALOG [Concomitant]
     Active Substance: INSULIN LISPRO
  7. AMLODIPINE [Concomitant]
     Active Substance: AMLODIPINE BESYLATE
  8. CINNAMON. [Concomitant]
     Active Substance: CINNAMON
  9. GABAPENTIN. [Concomitant]
     Active Substance: GABAPENTIN
  10. METOPROLOL. [Concomitant]
     Active Substance: METOPROLOL
  11. POTASSIUM CHLORIDE. [Concomitant]
     Active Substance: POTASSIUM CHLORIDE
  12. ALLOPURINOL. [Concomitant]
     Active Substance: ALLOPURINOL
  13. AMMONIUM LACTATE 12% [Concomitant]
     Active Substance: AMMONIUM LACTATE
  14. CYCLOBENZAPRINE. [Concomitant]
     Active Substance: CYCLOBENZAPRINE
  15. LEVOTHYROXINE. [Concomitant]
     Active Substance: LEVOTHYROXINE
  16. MYCOPHENYLATE [Concomitant]
     Active Substance: MYCOPHENOLATE MOFETIL
  17. DOCUSATE [Concomitant]
     Active Substance: DOCUSATE
  18. ATORVASTATIN [Concomitant]
     Active Substance: ATORVASTATIN
  19. SPRYCEL [Suspect]
     Active Substance: DASATINIB
     Indication: CHRONIC MYELOID LEUKAEMIA
     Dosage: ?          OTHER FREQUENCY:EVERY OTHER DAY;?
     Route: 048
     Dates: start: 20191120
  20. ALBUTEROL HFA [Concomitant]
     Active Substance: ALBUTEROL SULFATE
  21. CLOPIDOGREL [Concomitant]
     Active Substance: CLOPIDOGREL BISULFATE
  22. BACTRIM [Concomitant]
     Active Substance: SULFAMETHOXAZOLE\TRIMETHOPRIM

REACTIONS (1)
  - Pleural effusion [None]

NARRATIVE: CASE EVENT DATE: 20210330
